FAERS Safety Report 4760731-0 (Version None)
Quarter: 2005Q3

REPORT INFORMATION
  Report Type: 
  Country: None (occurrence: None)
  Receive Date: 20050902
  Receipt Date: 20050823
  Transmission Date: 20060218
  Serious: Yes (Hospitalization, Other)
  Sender: FDA-Public Use
  Company Number: 200516334US

PATIENT
  Sex: 0

DRUGS (1)
  1. KETEK [Suspect]
     Dosage: DOSE: UNKNOWN

REACTIONS (6)
  - ANOREXIA [None]
  - ASTHENIA [None]
  - BILIARY CIRRHOSIS [None]
  - FATIGUE [None]
  - FIBROMYALGIA [None]
  - PAIN [None]
